FAERS Safety Report 23968955 (Version 3)
Quarter: 2024Q3

REPORT INFORMATION
  Report Type: Spontaneous
  Country: CH (occurrence: CH)
  Receive Date: 20240612
  Receipt Date: 20240711
  Transmission Date: 20241017
  Serious: Yes (Other)
  Sender: APELLIS PHARMACEUTICALS
  Company Number: CH-BIOVITRUM-2024-CH-008074

PATIENT

DRUGS (1)
  1. PEGCETACOPLAN [Suspect]
     Active Substance: PEGCETACOPLAN
     Indication: Product used for unknown indication
     Dosage: 1080MG 2 TIMES PER WEEK
     Dates: start: 202212

REACTIONS (1)
  - Liposarcoma metastatic [Unknown]

NARRATIVE: CASE EVENT DATE: 20240404
